FAERS Safety Report 7258893-9 (Version None)
Quarter: 2011Q1

REPORT INFORMATION
  Report Type: 
  Country: None (occurrence: None)
  Receive Date: 20110129
  Receipt Date: 20100609
  Transmission Date: 20110831
  Serious: No
  Sender: FDA-Public Use
  Company Number: US-ABBOTT-10P-163-0650863-00

PATIENT
  Sex: Female
  Weight: 54.48 kg

DRUGS (7)
  1. NAPROXEN [Concomitant]
     Indication: HEADACHE
  2. PROVENTIL [Concomitant]
     Indication: HYPERSENSITIVITY
  3. MULTIVITAMIN [Concomitant]
     Indication: VITAMIN SUPPLEMENTATION
  4. HUMIRA [Suspect]
     Indication: CROHN'S DISEASE
     Route: 058
     Dates: start: 20100101
  5. NEXIUM [Concomitant]
     Indication: CROHN'S DISEASE
  6. LOVORA [Concomitant]
     Indication: CONTRACEPTION
  7. SINGULAIR [Concomitant]
     Indication: HYPERSENSITIVITY

REACTIONS (3)
  - FUNGAL SKIN INFECTION [None]
  - PRURITUS [None]
  - ONYCHOMYCOSIS [None]
